FAERS Safety Report 7549233-6 (Version None)
Quarter: 2011Q2

REPORT INFORMATION
  Report Type: 
  Country: None (occurrence: None)
  Receive Date: 20110615
  Receipt Date: 20110606
  Transmission Date: 20111010
  Serious: Yes (Disabling)
  Sender: FDA-Public Use
  Company Number: GB-ASTRAZENECA-2011SE06918

PATIENT
  Age: 72 Year
  Sex: Male
  Weight: 91.8 kg

DRUGS (9)
  1. ATORVASTATIN [Concomitant]
     Indication: HYPERCHOLESTEROLAEMIA
     Route: 048
  2. ASPIRIN [Concomitant]
  3. FELODIPINE [Interacting]
     Route: 048
     Dates: start: 20101219, end: 20110201
  4. BISOPROLOL FUMARATE [Concomitant]
     Indication: HYPERTENSION
     Route: 048
  5. LISINOPRIL [Concomitant]
     Indication: HYPERTENSION
     Route: 048
  6. FINASTERIDE [Suspect]
     Indication: PROSTATIC DISORDER
     Route: 048
  7. ALFUZOSIN HCL [Concomitant]
     Indication: PROSTATIC DISORDER
     Route: 048
  8. LISINOPRIL [Concomitant]
     Route: 048
  9. AMLODIPINE [Interacting]
     Indication: HYPERTENSION
     Route: 048

REACTIONS (3)
  - MYALGIA [None]
  - DRUG INTERACTION [None]
  - DRUG PRESCRIBING ERROR [None]
